FAERS Safety Report 5841719-5 (Version None)
Quarter: 2008Q3

REPORT INFORMATION
  Report Type: 
  Country: None (occurrence: None)
  Receive Date: 20080812
  Receipt Date: 20080806
  Transmission Date: 20090109
  Serious: Yes (Hospitalization)
  Sender: FDA-Public Use
  Company Number: US-GILEAD-2008-0017563

PATIENT
  Age: 65 Year
  Sex: Male

DRUGS (8)
  1. LETAIRIS [Suspect]
     Indication: PULMONARY ARTERIAL HYPERTENSION
     Route: 048
     Dates: start: 20080726
  2. COREG [Concomitant]
  3. DIOVAN [Concomitant]
  4. JANUVIA [Concomitant]
  5. LOPRESSOR [Concomitant]
  6. LASIX [Concomitant]
     Route: 048
  7. AMARYL [Concomitant]
  8. ZOCOR [Concomitant]

REACTIONS (3)
  - CARDIOGENIC SHOCK [None]
  - RENAL FAILURE ACUTE [None]
  - SWELLING [None]
